FAERS Safety Report 7965640-1 (Version None)
Quarter: 2011Q4

REPORT INFORMATION
  Report Type: 
  Country: None (occurrence: None)
  Receive Date: 20111208
  Receipt Date: 20111201
  Transmission Date: 20120403
  Serious: Yes (Disabling)
  Sender: FDA-Public Use
  Company Number: PHHY2011GB105173

PATIENT
  Age: 14 Year
  Sex: Male

DRUGS (4)
  1. RISPERIDONE [Suspect]
     Dosage: 0.75 MG, UNK
  2. RISPERIDONE [Suspect]
     Dosage: 1.1 MG, UNK
     Dates: end: 20110321
  3. RISPERIDONE [Suspect]
     Indication: ANXIETY
     Dosage: 0.2 MG, UNK
  4. RISPERIDONE [Suspect]
     Dosage: 1 MG, UNK

REACTIONS (2)
  - GROWTH RETARDATION [None]
  - WEIGHT DECREASED [None]
